FAERS Safety Report 20711641 (Version 1)
Quarter: 2022Q2

REPORT INFORMATION
  Report Type: Spontaneous
  Country: US (occurrence: US)
  Receive Date: 20220414
  Receipt Date: 20220414
  Transmission Date: 20220721
  Serious: No
  Sender: FDA-Public Use
  Company Number: US-PFIZER INC-202100993679

PATIENT
  Age: 67 Year
  Sex: Female
  Weight: 44.45 kg

DRUGS (1)
  1. CHANTIX [Suspect]
     Active Substance: VARENICLINE TARTRATE
     Dosage: 0.5 MG, 2X/DAY
     Route: 048
     Dates: start: 20210507, end: 20210605

REACTIONS (6)
  - Recalled product administered [Recovering/Resolving]
  - Illness [Recovering/Resolving]
  - Abdominal pain upper [Recovered/Resolved]
  - Abdominal discomfort [Recovering/Resolving]
  - Eating disorder [Recovering/Resolving]
  - Insomnia [Recovering/Resolving]
